FAERS Safety Report 4694011-9 (Version None)
Quarter: 2005Q2

REPORT INFORMATION
  Report Type: 
  Country: None (occurrence: None)
  Receive Date: 20050616
  Receipt Date: 20050513
  Transmission Date: 20051028
  Serious: Yes (Hospitalization)
  Sender: FDA-Public Use
  Company Number: PAR_0068_2005

PATIENT
  Age: 49 Year
  Sex: Female

DRUGS (3)
  1. FLUOXETINE [Suspect]
     Dosage: 10 MG QDAY
  2. IMIPRAMINE [Suspect]
     Dosage: 50 MG QHS
  3. LEVOFLOXACIN [Suspect]
     Dosage: 500 MG PER24HR  IV
     Route: 042

REACTIONS (7)
  - CHEST DISCOMFORT [None]
  - DRUG INTERACTION [None]
  - DRUG LEVEL INCREASED [None]
  - DYSPNOEA [None]
  - ELECTROCARDIOGRAM QT CORRECTED INTERVAL PROLONGED [None]
  - PAIN [None]
  - PYELONEPHRITIS [None]
